FAERS Safety Report 8851414 (Version 1)
Quarter: 2012Q4

REPORT INFORMATION
  Report Type: 
  Country: US (occurrence: US)
  Receive Date: 20121021
  Receipt Date: 20121021
  Transmission Date: 20130627
  Serious: Yes (Other)
  Sender: FDA-Public Use
  Company Number: US-TEVA-365318USA

PATIENT
  Sex: Female

DRUGS (1)
  1. FENTORA [Suspect]
     Indication: PAIN
     Dosage: QID prn pain
     Route: 002
     Dates: start: 2010

REACTIONS (3)
  - Swollen tongue [Unknown]
  - Rash [Unknown]
  - Hypersensitivity [Unknown]
